FAERS Safety Report 11848947 (Version 1)
Quarter: 2015Q4

REPORT INFORMATION
  Report Type: Spontaneous
  Country: JP (occurrence: JP)
  Receive Date: 20151218
  Receipt Date: 20151218
  Transmission Date: 20160305
  Serious: Yes (Death)
  Sender: FDA-Public Use
  Company Number: PHHY2015JP129528

PATIENT
  Age: 82 Year
  Sex: Male

DRUGS (2)
  1. VOTRIENT [Suspect]
     Active Substance: PAZOPANIB HYDROCHLORIDE
     Indication: EXTRA-OSSEOUS EWING^S SARCOMA
     Dosage: 800 MG, QD
     Route: 048
     Dates: start: 20140601
  2. VOTRIENT [Suspect]
     Active Substance: PAZOPANIB HYDROCHLORIDE
     Dosage: 400 MG, 1D
     Route: 048
     Dates: end: 20150208

REACTIONS (4)
  - Platelet count decreased [Recovered/Resolved]
  - Malignant neoplasm progression [Fatal]
  - Oedema [Not Recovered/Not Resolved]
  - Decreased appetite [Not Recovered/Not Resolved]

NARRATIVE: CASE EVENT DATE: 20140702
